FAERS Safety Report 4472712-5 (Version None)
Quarter: 2004Q4

REPORT INFORMATION
  Report Type: 
  Country: None (occurrence: None)
  Receive Date: 20041012
  Receipt Date: 20041012
  Transmission Date: 20050328
  Serious: Yes (Congenital Anomaly)
  Sender: FDA-Public Use
  Company Number: None

PATIENT
  Age: 51 Year
  Sex: Female
  Weight: 106.5953 kg

DRUGS (8)
  1. VIOXX [Suspect]
     Indication: FIBROMYALGIA
     Dosage: 1 DAILY
     Dates: start: 20030708, end: 20040903
  2. EFFEXOR [Concomitant]
  3. ABILIFY [Concomitant]
  4. KLONOPIN [Concomitant]
  5. ELAVIL [Concomitant]
  6. GABITRIL [Concomitant]
  7. ULTRAM [Concomitant]
  8. VIOXX [Concomitant]

REACTIONS (3)
  - CHEST PAIN [None]
  - CONDITION AGGRAVATED [None]
  - PAIN [None]
